FAERS Safety Report 8451030-4 (Version None)
Quarter: 2012Q2

REPORT INFORMATION
  Report Type: 
  Country: None (occurrence: None)
  Receive Date: 20120620
  Receipt Date: 20120619
  Transmission Date: 20120825
  Serious: Yes (Death)
  Sender: FDA-Public Use
  Company Number: JP-FRI-1000024681

PATIENT
  Sex: Female

DRUGS (5)
  1. MEMANTINE HCL [Suspect]
     Dosage: 15 MG
     Route: 048
     Dates: start: 20111001, end: 20111004
  2. LENDORMIN [Suspect]
     Dosage: 0.25 MG
     Route: 048
     Dates: start: 20070701, end: 20111004
  3. ZOLPIDEM [Suspect]
     Dosage: 5 MG
     Route: 048
     Dates: start: 20110301, end: 20111004
  4. MEMANTINE HCL [Suspect]
     Indication: DEMENTIA ALZHEIMER'S TYPE
     Dosage: 5 MG
     Route: 048
     Dates: start: 20110829, end: 20110921
  5. MEMANTINE HCL [Suspect]
     Dosage: 10 MG
     Route: 048
     Dates: start: 20110922, end: 20110930

REACTIONS (2)
  - FALL [None]
  - DIZZINESS [None]
